FAERS Safety Report 16849985 (Version 3)
Quarter: 2020Q3

REPORT INFORMATION
  Report Type: Spontaneous
  Country: US (occurrence: US)
  Receive Date: 20190925
  Receipt Date: 20200826
  Transmission Date: 20201102
  Serious: Yes (Hospitalization, Other)
  Sender: FDA-Public Use
  Company Number: US-ASTRAZENECA-2019SF34421

PATIENT
  Age: 20353 Day
  Sex: Female
  Weight: 111.2 kg

DRUGS (49)
  1. PEPCID [Concomitant]
     Active Substance: FAMOTIDINE
     Dates: start: 20190719
  2. PROTONIX [Concomitant]
     Active Substance: PANTOPRAZOLE SODIUM
  3. PROAIR HFA [Concomitant]
     Active Substance: ALBUTEROL SULFATE
  4. GLUCAGEN [Concomitant]
     Active Substance: GLUCAGON HYDROCHLORIDE
  5. BYDUREON [Concomitant]
     Active Substance: EXENATIDE
  6. CLEOCIN [Concomitant]
     Active Substance: CLINDAMYCIN PHOSPHATE
  7. ASPIRIN. [Concomitant]
     Active Substance: ASPIRIN
  8. ENOXAPARIN [Concomitant]
     Active Substance: ENOXAPARIN
  9. ATIVAN [Concomitant]
     Active Substance: LORAZEPAM
  10. ROXICODONE [Concomitant]
     Active Substance: OXYCODONE HYDROCHLORIDE
  11. OXYCODONE [Concomitant]
     Active Substance: OXYCODONE
  12. UNASYN [Concomitant]
     Active Substance: AMPICILLIN SODIUM\SULBACTAM SODIUM
  13. MAXIPIME [Concomitant]
     Active Substance: CEFEPIME HYDROCHLORIDE
  14. ALBUTEROL. [Concomitant]
     Active Substance: ALBUTEROL
  15. PIPERACILLIN AND TAZOBACTAM [Concomitant]
     Active Substance: PIPERACILLIN SODIUM\TAZOBACTAM SODIUM
  16. MULTIVITAMIN [Concomitant]
     Active Substance: VITAMINS
     Dates: start: 20190719
  17. ATORVASTATIN [Concomitant]
     Active Substance: ATORVASTATIN
     Dates: start: 20190719
  18. MAGNESIUM OXIDE. [Concomitant]
     Active Substance: MAGNESIUM OXIDE
     Dates: start: 20190719
  19. LANTUS [Concomitant]
     Active Substance: INSULIN GLARGINE
  20. SUBLIMAZE [Concomitant]
     Active Substance: FENTANYL CITRATE
  21. LACTATED RINGERS SOLUTION [Concomitant]
     Active Substance: CALCIUM CHLORIDE\POTASSIUM CHLORIDE\SODIUM CHLORIDE\SODIUM LACTATE
  22. SODIUM CHLORIDE. [Concomitant]
     Active Substance: SODIUM CHLORIDE
  23. ONDANSETRON [Concomitant]
     Active Substance: ONDANSETRON
  24. PHENYLEPHRINE [Concomitant]
     Active Substance: PHENYLEPHRINE HYDROCHLORIDE
  25. FARXIGA [Suspect]
     Active Substance: DAPAGLIFLOZIN PROPANEDIOL
     Indication: TYPE 2 DIABETES MELLITUS
     Route: 048
     Dates: start: 201803, end: 201807
  26. FARXIGA [Suspect]
     Active Substance: DAPAGLIFLOZIN PROPANEDIOL
     Indication: WEIGHT DECREASED
     Route: 048
     Dates: start: 201803, end: 201807
  27. FARXIGA [Suspect]
     Active Substance: DAPAGLIFLOZIN PROPANEDIOL
     Indication: BLOOD PRESSURE DECREASED
     Route: 048
     Dates: start: 201803, end: 201807
  28. NORVASC [Concomitant]
     Active Substance: AMLODIPINE BESYLATE
  29. VIBRA [Concomitant]
  30. MICATIN [Concomitant]
     Active Substance: MICONAZOLE NITRATE
  31. GLUCOTROL [Concomitant]
     Active Substance: GLIPIZIDE
  32. CLINDAMYCIN. [Concomitant]
     Active Substance: CLINDAMYCIN
  33. HYDROMORPHONE [Concomitant]
     Active Substance: HYDROMORPHONE
  34. BUPIVACAINE. [Concomitant]
     Active Substance: BUPIVACAINE
  35. SIMETHICONE (DIMETHICONE) [Concomitant]
     Active Substance: DIMETHICONE
  36. GLYCOPYRROLATE. [Concomitant]
     Active Substance: GLYCOPYRROLATE
  37. TYLENOL [Concomitant]
     Active Substance: ACETAMINOPHEN
  38. FLAGYL [Concomitant]
     Active Substance: METRONIDAZOLE\METRONIDAZOLE HYDROCHLORIDE
  39. NITROSTAT [Concomitant]
     Active Substance: NITROGLYCERIN
  40. KEPPRA [Concomitant]
     Active Substance: LEVETIRACETAM
  41. ALLBEE WITH C [Concomitant]
  42. ZOFRAN [Concomitant]
     Active Substance: ONDANSETRON HYDROCHLORIDE
  43. IMODIUM [Concomitant]
     Active Substance: LOPERAMIDE HYDROCHLORIDE
  44. PRINIVIL [Concomitant]
     Active Substance: LISINOPRIL
  45. FERROUS SULFATE. [Concomitant]
     Active Substance: FERROUS SULFATE
  46. LIDOCAINE. [Concomitant]
     Active Substance: LIDOCAINE
  47. DOXYCYCLINE. [Concomitant]
     Active Substance: DOXYCYCLINE
     Dates: start: 20190719
  48. HEPARIN [Concomitant]
     Active Substance: HEPARIN SODIUM
     Dates: start: 20190719
  49. METFORMIN [Concomitant]
     Active Substance: METFORMIN HYDROCHLORIDE
     Dates: start: 20190719

REACTIONS (8)
  - Necrotising fasciitis [Unknown]
  - Rectal abscess [Unknown]
  - Renal failure [Unknown]
  - Abscess limb [Unknown]
  - Perirectal abscess [Unknown]
  - Acute kidney injury [Unknown]
  - Sepsis [Unknown]
  - Renal tubular necrosis [Unknown]

NARRATIVE: CASE EVENT DATE: 20180707
